FAERS Safety Report 15251344 (Version 1)
Quarter: 2018Q3

REPORT INFORMATION
  Report Type: Spontaneous
  Country: US (occurrence: US)
  Receive Date: 20180807
  Receipt Date: 20180807
  Transmission Date: 20181010
  Serious: Yes (Hospitalization, Other)
  Sender: FDA-Public Use
  Company Number: US-MYLANLABS-2018M1058982

PATIENT
  Age: 83 Year
  Sex: Male

DRUGS (5)
  1. BEVACIZUMAB. [Suspect]
     Active Substance: BEVACIZUMAB
     Indication: RECTAL CANCER STAGE IV
     Dosage: RECEIVED 19 CYCLES
     Route: 065
  2. OXALIPLATIN. [Suspect]
     Active Substance: OXALIPLATIN
     Indication: RECTAL CANCER STAGE IV
     Dosage: RECEIVED 19 CYCLES
     Route: 065
  3. PALONOSETRON. [Suspect]
     Active Substance: PALONOSETRON HYDROCHLORIDE
     Indication: PREMEDICATION
     Dosage: RECEIVED 20 CYCLES
     Route: 065
  4. FLUOROURACIL. [Suspect]
     Active Substance: FLUOROURACIL
     Indication: RECTAL CANCER STAGE IV
     Dosage: UNK
     Route: 065
  5. CALCIUM FOLINATE [Suspect]
     Active Substance: LEUCOVORIN CALCIUM
     Indication: RECTAL CANCER STAGE IV
     Dosage: RECEIVED 20 CYCLES
     Route: 065

REACTIONS (12)
  - Acute kidney injury [Recovered/Resolved]
  - Intravascular haemolysis [Unknown]
  - Immune system disorder [Recovered/Resolved]
  - Thrombocytopenia [Recovered/Resolved]
  - Normochromic normocytic anaemia [Recovered/Resolved]
  - Hypertension [Unknown]
  - Leukocytosis [Recovered/Resolved]
  - Neutropenia [Recovered/Resolved]
  - Immune thrombocytopenic purpura [Recovered/Resolved]
  - Anaemia [Recovered/Resolved]
  - Thrombotic microangiopathy [Unknown]
  - Microangiopathic haemolytic anaemia [Unknown]
